FAERS Safety Report 10649479 (Version 1)
Quarter: 2014Q4

REPORT INFORMATION
  Report Type: Spontaneous
  Country: US (occurrence: None)
  Receive Date: 20141205
  Receipt Date: 20141205
  Transmission Date: 20150529
  Serious: No
  Sender: FDA-Public Use
  Company Number: 163-POMAL-14093591

PATIENT
  Age: 79 Year
  Sex: Female
  Weight: 65.77 kg

DRUGS (11)
  1. PROBIOTIC (BIFIDOBACTERIUM LACTIS) [Concomitant]
  2. CYCLOBENZAPRINE [Concomitant]
     Active Substance: CYCLOBENZAPRINE
  3. POTASSIUM [Concomitant]
     Active Substance: POTASSIUM
  4. POMALYST [Suspect]
     Active Substance: POMALIDOMIDE
     Indication: PLASMA CELL MYELOMA
     Dosage: 4 MG, 21 IN 28 D, PO
     Route: 048
     Dates: start: 20130726
  5. OXYCODONE/ACETAMINPHEN (PARACETAMOL, OXYCODONE HYDROCHLORIDE) [Concomitant]
  6. ASPIRIN (ACETYLSALICYLIC ACID) [Concomitant]
     Active Substance: ASPIRIN
  7. FUROSEMIDE. [Concomitant]
     Active Substance: FUROSEMIDE
  8. DEXAMETHASONE. [Concomitant]
     Active Substance: DEXAMETHASONE
  9. COLACE [Concomitant]
     Active Substance: DOCUSATE SODIUM
  10. SYNTHROID [Concomitant]
     Active Substance: LEVOTHYROXINE SODIUM
  11. ZOFRAN (ONDANSETRON) [Concomitant]

REACTIONS (2)
  - Urinary retention [None]
  - Dysuria [None]

NARRATIVE: CASE EVENT DATE: 20140913
